FAERS Safety Report 8066854-5 (Version None)
Quarter: 2012Q1

REPORT INFORMATION
  Report Type: 
  Country: None (occurrence: None)
  Receive Date: 20120124
  Receipt Date: 20120120
  Transmission Date: 20120608
  Serious: Yes (Other)
  Sender: FDA-Public Use
  Company Number: FR-BAYER-2011-108221

PATIENT
  Age: 31 Year
  Sex: Female
  Weight: 100 kg

DRUGS (4)
  1. MIRENA [Suspect]
     Indication: CONTRACEPTION
     Dosage: 20 MCG/24HR, CONT
     Route: 015
     Dates: start: 20070920, end: 20110709
  2. IXEL [Concomitant]
     Indication: DEPRESSION
  3. DESLORATADINE [Concomitant]
  4. RISPERDAL [Concomitant]
     Indication: DEPRESSION

REACTIONS (2)
  - HEPATIC ADENOMA [None]
  - PROCEDURAL PAIN [None]
